FAERS Safety Report 6918624-6 (Version None)
Quarter: 2010Q3

REPORT INFORMATION
  Report Type: 
  Country: None (occurrence: None)
  Receive Date: 20100811
  Receipt Date: 20100804
  Transmission Date: 20110219
  Serious: Yes (Other)
  Sender: FDA-Public Use
  Company Number: US-PFIZER INC-2010098498

PATIENT
  Sex: Male

DRUGS (4)
  1. GEODON [Suspect]
     Dosage: 160 MG, UNK
  2. KLONOPIN [Suspect]
     Indication: PANIC ATTACK
     Dosage: UNK
  3. KLONOPIN [Suspect]
     Indication: IRRITABILITY
  4. KLONOPIN [Suspect]
     Indication: ANGER

REACTIONS (3)
  - ANGER [None]
  - IRRITABILITY [None]
  - PANIC ATTACK [None]
